FAERS Safety Report 9700557 (Version 4)
Quarter: 2014Q2

REPORT INFORMATION
  Report Type: Report from Study
  Country: AU (occurrence: AU)
  Receive Date: 20131121
  Receipt Date: 20140610
  Transmission Date: 20141212
  Serious: Yes (Other)
  Sender: FDA-Public Use
  Company Number: PHHY2013AU132078

PATIENT
  Sex: Male

DRUGS (1)
  1. SANDOSTATIN LAR [Suspect]
     Indication: ACROMEGALY
     Dosage: 30 MG
     Route: 030
     Dates: start: 20130925

REACTIONS (3)
  - Thyroid cancer [Recovering/Resolving]
  - Diabetes mellitus [Recovering/Resolving]
  - Abdominal pain upper [Recovered/Resolved with Sequelae]
